FAERS Safety Report 16740231 (Version 1)
Quarter: 2019Q3

REPORT INFORMATION
  Report Type: Spontaneous
  Country: FR (occurrence: FR)
  Receive Date: 20190826
  Receipt Date: 20190826
  Transmission Date: 20191005
  Serious: Yes (Other)
  Sender: FDA-Public Use
  Company Number: FR-ROCHE-2387145

PATIENT
  Age: 64 Year
  Sex: Female
  Weight: 85.1 kg

DRUGS (12)
  1. BROMAZEPAM [Concomitant]
     Active Substance: BROMAZEPAM
  2. PREDNISONE. [Concomitant]
     Active Substance: PREDNISONE
  3. NICARDIPINE [Concomitant]
     Active Substance: NICARDIPINE
  4. INSULIN [Concomitant]
     Active Substance: INSULIN NOS
  5. FOSFOMYCINE [Concomitant]
     Active Substance: FOSFOMYCIN
  6. TACROLIMUS MONOHYDRATE [Concomitant]
     Active Substance: TACROLIMUS
  7. PANTOPRAZOLE [Suspect]
     Active Substance: PANTOPRAZOLE
     Indication: ABDOMINAL PAIN UPPER
     Route: 048
     Dates: start: 20190722
  8. CELLCEPT [Suspect]
     Active Substance: MYCOPHENOLATE MOFETIL\MYCOPHENOLATE MOFETIL HYDROCHLORIDE
     Indication: PROPHYLAXIS AGAINST TRANSPLANT REJECTION
     Dosage: ADAPTATION FONCTION DOSAGE PLASMATIQUE
     Route: 048
     Dates: start: 20190702
  9. PARACETAMOL [Concomitant]
     Active Substance: ACETAMINOPHEN
  10. AMOXICILLINE PANPHARMA [Suspect]
     Active Substance: AMOXICILLIN
     Indication: ENTEROCOCCAL INFECTION
     Route: 042
     Dates: start: 20190727
  11. DAPTOMYCINE [Concomitant]
     Active Substance: DAPTOMYCIN
  12. HEPARINE [HEPARIN] [Concomitant]
     Active Substance: HEPARIN SODIUM

REACTIONS (1)
  - Immunosuppressant drug level decreased [Not Recovered/Not Resolved]

NARRATIVE: CASE EVENT DATE: 20190725
